FAERS Safety Report 17730388 (Version 2)
Quarter: 2020Q3

REPORT INFORMATION
  Report Type: Other
  Country: US (occurrence: US)
  Receive Date: 20200430
  Receipt Date: 20200825
  Transmission Date: 20201102
  Serious: Yes (Other)
  Sender: FDA-Public Use
  Company Number: US-ROCHE-2374709

PATIENT
  Age: 53 Year
  Sex: Female
  Weight: 72.64 kg

DRUGS (14)
  1. FLUVASTATIN [Concomitant]
     Active Substance: FLUVASTATIN SODIUM
     Indication: BLOOD CHOLESTEROL INCREASED
     Route: 048
  2. PLAQUENIL [Concomitant]
     Active Substance: HYDROXYCHLOROQUINE SULFATE
  3. OCREVUS [Suspect]
     Active Substance: OCRELIZUMAB
     Dosage: FIRST FULL DOSE)
     Route: 042
     Dates: start: 201902
  4. VITAMIN D3 [Concomitant]
     Active Substance: CHOLECALCIFEROL
  5. MAGNESIUM [Concomitant]
     Active Substance: MAGNESIUM
  6. ROSUVASTATIN. [Concomitant]
     Active Substance: ROSUVASTATIN
     Indication: BLOOD CHOLESTEROL INCREASED
     Dosage: ONGOING YES
  7. PRAVASTATIN. [Concomitant]
     Active Substance: PRAVASTATIN
  8. COQ10 EXCEL [Concomitant]
     Indication: PERIPHERAL SWELLING
     Dosage: ONGOING : YES
     Route: 048
  9. COQ10 EXCEL [Concomitant]
     Dosage: ONGOING ?YES
  10. OCREVUS [Suspect]
     Active Substance: OCRELIZUMAB
     Indication: RELAPSING-REMITTING MULTIPLE SCLEROSIS
     Dosage: MOST RECENT INFUSION WAS 31?JUL?2019
     Route: 042
     Dates: start: 20180801
  11. HYDROXYCHLOROQUINE [Concomitant]
     Active Substance: HYDROXYCHLOROQUINE
     Indication: PERIPHERAL SWELLING
     Route: 048
  12. CALTRATE [Concomitant]
     Active Substance: CALCIUM CARBONATE
     Indication: OSTEOPOROSIS
     Dosage: ONGOING: YES
  13. FAMOTIDINE. [Concomitant]
     Active Substance: FAMOTIDINE
     Indication: GASTROOESOPHAGEAL REFLUX DISEASE
     Dosage: ONGOING: YES
  14. CANDESARTAN. [Concomitant]
     Active Substance: CANDESARTAN

REACTIONS (15)
  - Fatigue [Not Recovered/Not Resolved]
  - Ocular discomfort [Not Recovered/Not Resolved]
  - Sinus headache [Not Recovered/Not Resolved]
  - Hypoaesthesia [Not Recovered/Not Resolved]
  - Sinus congestion [Recovering/Resolving]
  - Ear pain [Recovering/Resolving]
  - Night sweats [Not Recovered/Not Resolved]
  - Pyrexia [Unknown]
  - Basal cell carcinoma [Recovered/Resolved]
  - Gait disturbance [Not Recovered/Not Resolved]
  - Ear pain [Not Recovered/Not Resolved]
  - Rhinorrhoea [Recovering/Resolving]
  - Lymphadenopathy [Not Recovered/Not Resolved]
  - Pruritus [Recovered/Resolved]
  - Neuropathy peripheral [Not Recovered/Not Resolved]

NARRATIVE: CASE EVENT DATE: 20180801
